FAERS Safety Report 9657308 (Version 1)
Quarter: 2013Q4

REPORT INFORMATION
  Report Type: Spontaneous
  Country: US (occurrence: US)
  Receive Date: 20131030
  Receipt Date: 20131030
  Transmission Date: 20140711
  Serious: Yes (Other)
  Sender: FDA-Public Use
  Company Number: US-SA-2013SA109910

PATIENT
  Age: 37 Year
  Sex: Male

DRUGS (1)
  1. ALLEGRA-D [Suspect]
     Indication: HYPERSENSITIVITY
     Route: 048

REACTIONS (2)
  - Blood pressure increased [Unknown]
  - Sinusitis [Unknown]
